FAERS Safety Report 11864244 (Version 1)
Quarter: 2015Q4

REPORT INFORMATION
  Report Type: Spontaneous
  Country: FR (occurrence: FR)
  Receive Date: 20151223
  Receipt Date: 20151223
  Transmission Date: 20160305
  Serious: Yes (Life-Threatening, Other)
  Sender: FDA-Public Use
  Company Number: FR-BAXTER-2015BAX068494

PATIENT
  Age: 3 Month
  Sex: Female

DRUGS (18)
  1. SABRIL [Concomitant]
     Active Substance: VIGABATRIN
     Indication: EPILEPSY
     Route: 065
  2. ENDOXAN 1000 MG, POUDRE POUR SOLUTION INJECTABLE [Suspect]
     Active Substance: CYCLOPHOSPHAMIDE
     Indication: BRAIN NEOPLASM
     Dosage: FIRST COURSE OF CPT SIOP
     Route: 042
     Dates: start: 20150630
  3. ENDOXAN 1000 MG, POUDRE POUR SOLUTION INJECTABLE [Suspect]
     Active Substance: CYCLOPHOSPHAMIDE
     Dosage: SECOND COURSE OF CPT SIOP
     Route: 042
     Dates: start: 20150728, end: 20150801
  4. ENDOXAN 1000 MG, POUDRE POUR SOLUTION INJECTABLE [Suspect]
     Active Substance: CYCLOPHOSPHAMIDE
     Dosage: THIRD COURSE OF CYCEV
     Route: 042
     Dates: start: 20150825, end: 20150830
  5. ETOPOSIDE TEVA [Suspect]
     Active Substance: ETOPOSIDE
     Dosage: SECOND COURSE OF CPT SIOP
     Route: 065
     Dates: start: 20150728, end: 20150801
  6. MERONEM [Concomitant]
     Active Substance: MEROPENEM
     Indication: ANTIBIOTIC THERAPY
     Route: 065
     Dates: end: 20150728
  7. ETOPOSIDE TEVA [Suspect]
     Active Substance: ETOPOSIDE
     Dosage: STARTED ON D2 VIA RICKAM RESERVOIR
     Route: 037
     Dates: start: 20150729
  8. VINCRISTINE HOSPIRA [Suspect]
     Active Substance: VINCRISTINE
     Indication: BRAIN NEOPLASM
     Dosage: 2 MG/2 ML STRENGTH, FIRST COURSE OF CPT SIOP
     Route: 042
     Dates: start: 20150630
  9. VINCRISTINE HOSPIRA [Suspect]
     Active Substance: VINCRISTINE
     Dosage: REDUCED DOSE
     Route: 042
  10. CARBOPLATIN HOSPIRA [Suspect]
     Active Substance: CARBOPLATIN
     Indication: BRAIN NEOPLASM
     Route: 065
     Dates: start: 20150728, end: 20150801
  11. VINCRISTINE [Suspect]
     Active Substance: VINCRISTINE
     Indication: BRAIN NEOPLASM
     Dosage: THIRD COURSE OF CYCEV
     Route: 065
     Dates: start: 20150728, end: 20150801
  12. VANCOMYCIN [Concomitant]
     Active Substance: VANCOMYCIN
     Indication: ANTIBIOTIC THERAPY
     Route: 065
     Dates: end: 20150728
  13. ETOPOSIDE TEVA [Suspect]
     Active Substance: ETOPOSIDE
     Indication: BRAIN NEOPLASM
     Dosage: FIRST COURSE OF CPT SIOP
     Route: 042
     Dates: start: 20150630
  14. ETOPOSIDE TEVA [Suspect]
     Active Substance: ETOPOSIDE
     Dosage: THIRD COURSE OF CYCEV
     Route: 065
     Dates: start: 20150825, end: 20150830
  15. ETOPOSIDE TEVA [Suspect]
     Active Substance: ETOPOSIDE
     Dosage: 5 INJECTIONS, REDUCTION IN THE DOSAGE TO 66 %
     Route: 037
     Dates: start: 20150825, end: 20150830
  16. ARACYTINE [Suspect]
     Active Substance: CYTARABINE
     Indication: BRAIN NEOPLASM
     Dosage: 2 INJECTIONS
     Route: 037
     Dates: start: 20150630
  17. CARBOPLATIN HOSPIRA [Suspect]
     Active Substance: CARBOPLATIN
     Dosage: REDUCED DOSE
     Route: 065
  18. VINCRISTINE [Suspect]
     Active Substance: VINCRISTINE
     Dosage: THIRD COURSE OF CYCEV
     Route: 065
     Dates: start: 20150825, end: 20150830

REACTIONS (5)
  - Venoocclusive liver disease [Recovered/Resolved]
  - Bone marrow failure [Recovered/Resolved]
  - Vomiting [Unknown]
  - Thrombocytopenia [Unknown]
  - Gastrooesophageal reflux disease [Unknown]

NARRATIVE: CASE EVENT DATE: 20150731
